FAERS Safety Report 21049083 (Version 1)
Quarter: 2022Q3

REPORT INFORMATION
  Report Type: Spontaneous
  Country: US (occurrence: None)
  Receive Date: 20220706
  Receipt Date: 20220706
  Transmission Date: 20221026
  Serious: Yes (Hospitalization)
  Sender: FDA-Public Use
  Company Number: None

PATIENT
  Sex: Female

DRUGS (1)
  1. STIVARGA [Suspect]
     Active Substance: REGORAFENIB
     Indication: Rectosigmoid cancer
     Dosage: TAKE 2 TABLETS BY MOUTH DAILY FOR 7 DAYS, THEN 3 TABLETS FOR 7 DAYS THEN 4 TABLETS FOR 7 DAYS THEN H
     Dates: start: 202205, end: 202205

REACTIONS (2)
  - Gait disturbance [None]
  - Hypertension [None]
